FAERS Safety Report 11913912 (Version 1)
Quarter: 2016Q1

REPORT INFORMATION
  Report Type: Spontaneous
  Country: US (occurrence: US)
  Receive Date: 20160113
  Receipt Date: 20160113
  Transmission Date: 20160526
  Serious: Yes (Death)
  Sender: FDA-Public Use
  Company Number: US-MEDA-2016010066

PATIENT
  Age: 62 Year
  Sex: Female

DRUGS (2)
  1. HYDROCODONE W/ACETAMINOPHEN [Suspect]
     Active Substance: ACETAMINOPHEN\HYDROCODONE BITARTRATE
  2. CARISOPRODOL. [Suspect]
     Active Substance: CARISOPRODOL

REACTIONS (2)
  - Completed suicide [Fatal]
  - Cardio-respiratory arrest [Fatal]

NARRATIVE: CASE EVENT DATE: 2014
